FAERS Safety Report 4636575-7 (Version None)
Quarter: 2005Q2

REPORT INFORMATION
  Report Type: 
  Country: None (occurrence: None)
  Receive Date: 20050414
  Receipt Date: 20050329
  Transmission Date: 20051028
  Serious: Yes (Other)
  Sender: FDA-Public Use
  Company Number: 2004-BP-01783BP

PATIENT
  Age: 30 Year
  Sex: Female

DRUGS (2)
  1. VIRAMUNE [Suspect]
     Indication: HIV INFECTION
     Dates: start: 20031223
  2. COMBIVIR [Concomitant]

REACTIONS (10)
  - CHROMATURIA [None]
  - COUGH [None]
  - DIARRHOEA [None]
  - DRUG EXPOSURE DURING PREGNANCY [None]
  - FATIGUE [None]
  - HEADACHE [None]
  - HEPATOTOXICITY [None]
  - JAUNDICE [None]
  - OCULAR ICTERUS [None]
  - STILLBIRTH [None]
